FAERS Safety Report 21898588 (Version 2)
Quarter: 2023Q1

REPORT INFORMATION
  Report Type: Spontaneous
  Country: US (occurrence: US)
  Receive Date: 20230123
  Receipt Date: 20230124
  Transmission Date: 20230418
  Serious: No
  Sender: FDA-Public Use
  Company Number: US-PFIZER INC-202300029373

PATIENT
  Sex: Female

DRUGS (1)
  1. COLESTIPOL HYDROCHLORIDE [Suspect]
     Active Substance: COLESTIPOL HYDROCHLORIDE
     Indication: Post cholecystectomy syndrome
     Dosage: UNK
     Dates: start: 2015

REACTIONS (4)
  - Product physical issue [Unknown]
  - Frustration tolerance decreased [Unknown]
  - Off label use [Unknown]
  - Drug effective for unapproved indication [Unknown]
